FAERS Safety Report 15265897 (Version 1)
Quarter: 2018Q3

REPORT INFORMATION
  Report Type: Spontaneous
  Country: CH (occurrence: CH)
  Receive Date: 20180810
  Receipt Date: 20180810
  Transmission Date: 20181010
  Serious: Yes (Hospitalization)
  Sender: FDA-Public Use
  Company Number: CH-PFIZER INC-2018315326

PATIENT
  Age: 76 Year
  Sex: Female
  Weight: 55 kg

DRUGS (4)
  1. EMEND [Suspect]
     Active Substance: APREPITANT
     Dosage: 165 MG, SINGLE (165MG 1X IN TOTAL)
     Route: 048
     Dates: start: 20180711, end: 20180711
  2. TAVEGYL [Suspect]
     Active Substance: CLEMASTINE FUMARATE
     Dosage: 2 MG, SINGLE (2MG 1X IN TOTAL)
     Route: 042
     Dates: start: 20180711, end: 20180711
  3. SOLU?MEDROL [Suspect]
     Active Substance: METHYLPREDNISOLONE SODIUM SUCCINATE
     Dosage: 250 MG, UNK
     Route: 041
     Dates: start: 20180711, end: 20180711
  4. AUGMENTINE [Suspect]
     Active Substance: AMOXICILLIN\CLAVULANATE POTASSIUM
     Dosage: 1 G, 2X/DAY (1G EVERY 12 HOURS)
     Route: 048
     Dates: start: 20180706, end: 20180710

REACTIONS (1)
  - Coombs positive haemolytic anaemia [Recovered/Resolved]

NARRATIVE: CASE EVENT DATE: 20180711
